FAERS Safety Report 8395679-6 (Version None)
Quarter: 2012Q2

REPORT INFORMATION
  Report Type: 
  Country: None (occurrence: None)
  Receive Date: 20120530
  Receipt Date: 20120220
  Transmission Date: 20120825
  Serious: No
  Sender: FDA-Public Use
  Company Number: US-GLAXOSMITHKLINE-A0966556A

PATIENT
  Age: 41 Year
  Sex: Female

DRUGS (2)
  1. VENTOLIN [Suspect]
     Indication: BRONCHITIS
     Route: 055
     Dates: start: 20120218, end: 20120219
  2. CLINDAMYCIN [Concomitant]

REACTIONS (4)
  - HEADACHE [None]
  - DECREASED APPETITE [None]
  - DYSGEUSIA [None]
  - INSOMNIA [None]
